FAERS Safety Report 8779713 (Version 1)
Quarter: 2012Q4

REPORT INFORMATION
  Report Type: 
  Country: US (occurrence: US)
  Receive Date: 20120912
  Receipt Date: 20120912
  Transmission Date: 20130627
  Serious: No
  Sender: FDA-Public Use
  Company Number: US-TEVA-342856USA

PATIENT
  Sex: Female

DRUGS (1)
  1. QNASL [Suspect]
     Indication: SINUSITIS

REACTIONS (1)
  - Headache [Recovered/Resolved]
